FAERS Safety Report 8139200-6 (Version None)
Quarter: 2012Q1

REPORT INFORMATION
  Report Type: 
  Country: None (occurrence: None)
  Receive Date: 20120215
  Receipt Date: 20120206
  Transmission Date: 20120608
  Serious: Yes (Hospitalization, Other)
  Sender: FDA-Public Use
  Company Number: US-ABBOTT-12P-163-0902432-00

PATIENT
  Age: 25 Year
  Sex: Female

DRUGS (4)
  1. HUMIRA [Suspect]
     Indication: PSORIASIS
     Dates: start: 20111128, end: 20120130
  2. DEPAKOTE [Concomitant]
     Indication: EPILEPSY
     Route: 048
  3. BIRTH CONTROL [Concomitant]
     Indication: OVARIAN CYST
  4. MIRAPEX [Concomitant]
     Indication: RESTLESS LEGS SYNDROME
     Dosage: AT BEDTIME
     Route: 048

REACTIONS (2)
  - CONVULSION [None]
  - BACK DISORDER [None]
